FAERS Safety Report 6111701-1 (Version None)
Quarter: 2009Q1

REPORT INFORMATION
  Report Type: 
  Country: None (occurrence: None)
  Receive Date: 20090310
  Receipt Date: 20090310
  Transmission Date: 20090719
  Serious: Yes (Disabling)
  Sender: FDA-Public Use
  Company Number: None

PATIENT
  Age: 11 Year
  Sex: Female
  Weight: 27 kg

DRUGS (1)
  1. CATAPRES [Suspect]
     Indication: HYPERTENSION

REACTIONS (1)
  - APPLICATION SITE BURN [None]
